FAERS Safety Report 7918222 (Version 10)
Quarter: 2013Q1

REPORT INFORMATION
  Report Type: Spontaneous
  Country: DE (occurrence: DE)
  Receive Date: 20110428
  Receipt Date: 20130221
  Transmission Date: 20140127
  Serious: Yes (Hospitalization, Other)
  Sender: FDA-Public Use
  Company Number: PHHY2011DE32543

PATIENT
  Sex: Male
  Weight: 122 kg

DRUGS (8)
  1. SANDOSTATIN LAR [Suspect]
     Indication: ACROMEGALY
     Dosage: 20 MG
     Route: 030
     Dates: start: 20101001
  2. SANDOSTATIN LAR [Suspect]
     Dosage: 20 MG, UNK
     Route: 030
     Dates: start: 20110317
  3. SANDOSTATIN LAR [Suspect]
     Dosage: 20 MG
     Route: 030
     Dates: start: 20110414
  4. SANDOSTATIN LAR [Suspect]
     Dosage: 20 MG
     Route: 030
     Dates: start: 20111028
  5. SANDOSTATIN LAR [Suspect]
     Dosage: 20 MG
     Route: 030
     Dates: start: 20130120
  6. ATACAND [Concomitant]
     Indication: BLOOD PRESSURE INCREASED
     Route: 065
  7. VIGANTOLETTEN [Concomitant]
     Indication: VITAMIN SUPPLEMENTATION
     Dosage: 1000 IE, 3XPER WEEK
     Dates: start: 20120504
  8. L-THYROXIN [Concomitant]
     Indication: THYROID DYSFUNCTION IN PREGNANCY
     Dosage: 0.5 DF, PER DAY
     Dates: start: 20120504

REACTIONS (15)
  - Haemorrhoids [Recovered/Resolved]
  - Nephrolithiasis [Unknown]
  - Haematochezia [Not Recovered/Not Resolved]
  - Renal pain [Unknown]
  - Tremor [Not Recovered/Not Resolved]
  - Jaw disorder [Not Recovered/Not Resolved]
  - Hyperhidrosis [Not Recovered/Not Resolved]
  - Faeces discoloured [Unknown]
  - Abnormal faeces [Not Recovered/Not Resolved]
  - Dysgeusia [Not Recovered/Not Resolved]
  - Nervousness [Not Recovered/Not Resolved]
  - Nausea [Not Recovered/Not Resolved]
  - Diarrhoea [Recovering/Resolving]
  - Alopecia [Not Recovered/Not Resolved]
  - Dizziness [Not Recovered/Not Resolved]
